FAERS Safety Report 12010473 (Version 1)
Quarter: 2016Q1

REPORT INFORMATION
  Report Type: Other
  Country: CA (occurrence: CA)
  Receive Date: 20160205
  Receipt Date: 20160205
  Transmission Date: 20160526
  Serious: Yes (Other)
  Sender: FDA-Public Use
  Company Number: CA-DUCHESNAY INC.-1047378

PATIENT
  Age: 27 Year
  Sex: Female
  Weight: 80 kg

DRUGS (7)
  1. DICLEGIS [Suspect]
     Active Substance: DOXYLAMINE SUCCINATE\PYRIDOXINE HYDROCHLORIDE
  2. REMICADE [Suspect]
     Active Substance: INFLIXIMAB
     Route: 042
  3. MAGNESIUM [Suspect]
     Active Substance: MAGNESIUM
  4. SYNTHROID [Suspect]
     Active Substance: LEVOTHYROXINE SODIUM
  5. ELAVIL [Suspect]
     Active Substance: AMITRIPTYLINE HYDROCHLORIDE
  6. IRON [Concomitant]
     Active Substance: IRON
  7. MULTIVITAMINS [Concomitant]
     Active Substance: VITAMINS

REACTIONS (6)
  - Nausea [Not Recovered/Not Resolved]
  - Exposure during pregnancy [None]
  - Gastroenteritis viral [Not Recovered/Not Resolved]
  - Vomiting [Not Recovered/Not Resolved]
  - Migraine [Not Recovered/Not Resolved]
  - Infusion related reaction [None]
